FAERS Safety Report 9915154 (Version 4)
Quarter: 2015Q1

REPORT INFORMATION
  Report Type: Report from Study
  Country: BE (occurrence: BE)
  Receive Date: 20140220
  Receipt Date: 20150109
  Transmission Date: 20150721
  Serious: Yes (Life-Threatening, Hospitalization, Other)
  Sender: FDA-Public Use
  Company Number: BE-ASTRAZENECA-2014SE10755

PATIENT
  Age: 81 Year
  Sex: Male

DRUGS (7)
  1. ASPIRIN. [Suspect]
     Active Substance: ASPIRIN
     Indication: ACUTE CORONARY SYNDROME
     Route: 048
     Dates: start: 20130819, end: 20140919
  2. ATORVASTATIN [Concomitant]
     Active Substance: ATORVASTATIN
  3. CORUNO [Concomitant]
     Active Substance: MOLSIDOMINE
  4. PANTOMED [Concomitant]
     Active Substance: DEXPANTHENOL
  5. TICAGRELOR [Suspect]
     Active Substance: TICAGRELOR
     Indication: ACUTE CORONARY SYNDROME
     Route: 048
     Dates: start: 20130819, end: 20130822
  6. TRITACE [Concomitant]
     Active Substance: RAMIPRIL
  7. BISOPROLOL [Concomitant]
     Active Substance: BISOPROLOL

REACTIONS (7)
  - Vascular pseudoaneurysm [Not Recovered/Not Resolved]
  - Acute myocardial infarction [Recovered/Resolved]
  - Urinary bladder haemorrhage [Not Recovered/Not Resolved]
  - Haematoma infection [Not Recovered/Not Resolved]
  - Tendon rupture [Recovered/Resolved]
  - Renal cell carcinoma [Not Recovered/Not Resolved]
  - Anaemia [Not Recovered/Not Resolved]

NARRATIVE: CASE EVENT DATE: 20130908
